FAERS Safety Report 8243982-2 (Version None)
Quarter: 2012Q1

REPORT INFORMATION
  Report Type: 
  Country: None (occurrence: None)
  Receive Date: 20120329
  Receipt Date: 20111220
  Transmission Date: 20120608
  Serious: No
  Sender: FDA-Public Use
  Company Number: US-MYLANLABS-2011S1026246

PATIENT
  Sex: Female

DRUGS (3)
  1. ESTRADIOL [Suspect]
     Indication: HORMONE REPLACEMENT THERAPY
     Dosage: CHANGED QW
     Route: 062
     Dates: start: 20101001, end: 20111001
  2. VITAMIN TAB [Concomitant]
  3. CALCIUM CARBONATE [Concomitant]

REACTIONS (4)
  - APPLICATION SITE URTICARIA [None]
  - HYPERSENSITIVITY [None]
  - APPLICATION SITE ERYTHEMA [None]
  - URTICARIA [None]
